FAERS Safety Report 4300668-4 (Version None)
Quarter: 2004Q1

REPORT INFORMATION
  Report Type: 
  Country: None (occurrence: None)
  Receive Date: 20040218
  Receipt Date: 20040129
  Transmission Date: 20041129
  Serious: Yes (Death, Other)
  Sender: FDA-Public Use
  Company Number: USA040157023

PATIENT
  Age: 36 Year
  Sex: Male

DRUGS (8)
  1. XIGRIS [Suspect]
     Indication: SEPTIC SHOCK
     Dosage: 24 UG/KG/HR
     Dates: start: 20040108, end: 20040112
  2. HUMALOG [Concomitant]
  3. EPOGEN [Concomitant]
  4. VANCOMYCIN [Concomitant]
  5. ZOSYN [Concomitant]
  6. TOBRAMYCIN [Concomitant]
  7. LEVOPHED [Concomitant]
  8. LOVENOX [Concomitant]

REACTIONS (10)
  - ABDOMINAL TENDERNESS [None]
  - CARDIAC ARREST [None]
  - COMA [None]
  - ELECTROMECHANICAL DISSOCIATION [None]
  - ENCEPHALOPATHY [None]
  - HAEMATOCRIT DECREASED [None]
  - HAEMOGLOBIN DECREASED [None]
  - PYREXIA [None]
  - RETROPERITONEAL HAEMORRHAGE [None]
  - SEPSIS [None]
